FAERS Safety Report 25817375 (Version 3)
Quarter: 2025Q4

REPORT INFORMATION
  Report Type: Spontaneous
  Country: EU (occurrence: EU)
  Receive Date: 20250918
  Receipt Date: 20251125
  Transmission Date: 20260118
  Serious: Yes (Hospitalization, Other)
  Sender: MYLAN
  Company Number: EU-BRUNO-20250347

PATIENT
  Age: 42 Year
  Sex: Female

DRUGS (28)
  1. PREDNISONE [Suspect]
     Active Substance: PREDNISONE
     Indication: Polyomavirus-associated nephropathy
     Dosage: 4 MILLIGRAM, QD
  2. PREDNISONE [Suspect]
     Active Substance: PREDNISONE
     Dosage: 4 MILLIGRAM, QD
     Route: 065
  3. PREDNISONE [Suspect]
     Active Substance: PREDNISONE
     Dosage: 4 MILLIGRAM, QD
     Route: 065
  4. PREDNISONE [Suspect]
     Active Substance: PREDNISONE
     Dosage: 4 MILLIGRAM, QD
  5. MYCOPHENOLATE MOFETIL [Suspect]
     Active Substance: MYCOPHENOLATE MOFETIL
     Indication: Polyomavirus-associated nephropathy
     Dosage: 1 GRAM, BID
     Route: 065
  6. MYCOPHENOLATE MOFETIL [Suspect]
     Active Substance: MYCOPHENOLATE MOFETIL
     Indication: Immunosuppressant drug therapy
     Dosage: 1 GRAM, BID
  7. MYCOPHENOLATE MOFETIL [Suspect]
     Active Substance: MYCOPHENOLATE MOFETIL
     Dosage: 1 GRAM, BID
  8. MYCOPHENOLATE MOFETIL [Suspect]
     Active Substance: MYCOPHENOLATE MOFETIL
     Dosage: 1 GRAM, BID
     Route: 065
  9. MYCOPHENOLATE MOFETIL [Suspect]
     Active Substance: MYCOPHENOLATE MOFETIL
     Dosage: 500 MILLIGRAM, BID, TEMPORARILY REDUCED TO 500 MG BID
     Route: 065
  10. MYCOPHENOLATE MOFETIL [Suspect]
     Active Substance: MYCOPHENOLATE MOFETIL
     Dosage: 500 MILLIGRAM, BID, TEMPORARILY REDUCED TO 500 MG BID
  11. MYCOPHENOLATE MOFETIL [Suspect]
     Active Substance: MYCOPHENOLATE MOFETIL
     Dosage: 500 MILLIGRAM, BID, TEMPORARILY REDUCED TO 500 MG BID
  12. MYCOPHENOLATE MOFETIL [Suspect]
     Active Substance: MYCOPHENOLATE MOFETIL
     Dosage: 500 MILLIGRAM, BID, TEMPORARILY REDUCED TO 500 MG BID
     Route: 065
  13. MYCOPHENOLATE MOFETIL [Suspect]
     Active Substance: MYCOPHENOLATE MOFETIL
     Dosage: 1 GRAM, BID, RESTORED TO 1 G BID
     Route: 065
  14. MYCOPHENOLATE MOFETIL [Suspect]
     Active Substance: MYCOPHENOLATE MOFETIL
     Dosage: 1 GRAM, BID, RESTORED TO 1 G BID
     Route: 065
  15. MYCOPHENOLATE MOFETIL [Suspect]
     Active Substance: MYCOPHENOLATE MOFETIL
     Dosage: 1 GRAM, BID, RESTORED TO 1 G BID
  16. MYCOPHENOLATE MOFETIL [Suspect]
     Active Substance: MYCOPHENOLATE MOFETIL
     Dosage: 1 GRAM, BID, RESTORED TO 1 G BID
  17. TACROLIMUS [Suspect]
     Active Substance: TACROLIMUS
     Indication: Polyomavirus-associated nephropathy
     Dosage: 2?4 NANOGRAM/MILLILITER, TARGET TROUGH LEVEL 10?12 NG/ML IN THE FIRST THREE
  18. TACROLIMUS [Suspect]
     Active Substance: TACROLIMUS
     Indication: Immunosuppressant drug therapy
     Dosage: 2?4 NANOGRAM/MILLILITER, TARGET TROUGH LEVEL 10?12 NG/ML IN THE FIRST THREE
     Route: 065
  19. TACROLIMUS [Suspect]
     Active Substance: TACROLIMUS
     Dosage: 2?4 NANOGRAM/MILLILITER, TARGET TROUGH LEVEL 10?12 NG/ML IN THE FIRST THREE
     Route: 065
  20. TACROLIMUS [Suspect]
     Active Substance: TACROLIMUS
     Dosage: 2?4 NANOGRAM/MILLILITER, TARGET TROUGH LEVEL 10?12 NG/ML IN THE FIRST THREE
  21. METHYLPREDNISOLONE [Suspect]
     Active Substance: METHYLPREDNISOLONE
     Indication: Immunosuppressant drug therapy
     Dosage: 16 MILLIGRAM, QD, IN THE FIRST THREE MONTHS, THEN TAPERED TO 4 MG/DAY GRADUALLY
  22. METHYLPREDNISOLONE [Suspect]
     Active Substance: METHYLPREDNISOLONE
     Dosage: 16 MILLIGRAM, QD, IN THE FIRST THREE MONTHS, THEN TAPERED TO 4 MG/DAY GRADUALLY
  23. METHYLPREDNISOLONE [Suspect]
     Active Substance: METHYLPREDNISOLONE
     Dosage: 16 MILLIGRAM, QD, IN THE FIRST THREE MONTHS, THEN TAPERED TO 4 MG/DAY GRADUALLY
     Route: 065
  24. METHYLPREDNISOLONE [Suspect]
     Active Substance: METHYLPREDNISOLONE
     Dosage: 16 MILLIGRAM, QD, IN THE FIRST THREE MONTHS, THEN TAPERED TO 4 MG/DAY GRADUALLY
     Route: 065
  25. METHYLPREDNISOLONE [Suspect]
     Active Substance: METHYLPREDNISOLONE
     Dosage: 4 MILLIGRAM, QD IN THE FIRST THREE MONTHS, THEN TAPERED TO 4 MG/DAY GRADUALLY
  26. METHYLPREDNISOLONE [Suspect]
     Active Substance: METHYLPREDNISOLONE
     Dosage: 4 MILLIGRAM, QD IN THE FIRST THREE MONTHS, THEN TAPERED TO 4 MG/DAY GRADUALLY
  27. METHYLPREDNISOLONE [Suspect]
     Active Substance: METHYLPREDNISOLONE
     Dosage: 4 MILLIGRAM, QD IN THE FIRST THREE MONTHS, THEN TAPERED TO 4 MG/DAY GRADUALLY
     Route: 065
  28. METHYLPREDNISOLONE [Suspect]
     Active Substance: METHYLPREDNISOLONE
     Dosage: 4 MILLIGRAM, QD IN THE FIRST THREE MONTHS, THEN TAPERED TO 4 MG/DAY GRADUALLY
     Route: 065

REACTIONS (12)
  - Arteriovenous fistula thrombosis [Unknown]
  - Acute kidney injury [Unknown]
  - Colitis [Unknown]
  - BK virus infection [Recovered/Resolved]
  - Polyomavirus-associated nephropathy [Recovered/Resolved]
  - Viraemia [Recovered/Resolved]
  - Polyomavirus viraemia [Recovered/Resolved]
  - Pneumonia influenzal [Unknown]
  - Diarrhoea [Unknown]
  - COVID-19 [Unknown]
  - Toxicity to various agents [Unknown]
  - Disease recurrence [Unknown]

NARRATIVE: CASE EVENT DATE: 20200801
